FAERS Safety Report 6938329-5 (Version None)
Quarter: 2010Q3

REPORT INFORMATION
  Report Type: 
  Country: None (occurrence: None)
  Receive Date: 20100824
  Receipt Date: 20100816
  Transmission Date: 20110219
  Serious: Yes (Other)
  Sender: FDA-Public Use
  Company Number: JP-PFIZER INC-2010096928

PATIENT
  Age: 56 Year
  Sex: Female
  Weight: 61 kg

DRUGS (4)
  1. AZULFIDINE [Suspect]
     Indication: RHEUMATOID ARTHRITIS
     Dosage: 500 MG, 2X/DAY
     Route: 048
     Dates: start: 20100712, end: 20100719
  2. AZULFIDINE [Suspect]
     Dosage: 500 MG, 2X/DAY
     Route: 048
     Dates: start: 20100726, end: 20100802
  3. D ALFA [Suspect]
     Dosage: 1UG, UNK
     Route: 048
  4. TENORMIN [Suspect]
     Dosage: 25MG, UNK
     Route: 048

REACTIONS (1)
  - FAECES DISCOLOURED [None]
